FAERS Safety Report 16948310 (Version 1)
Quarter: 2019Q4

REPORT INFORMATION
  Report Type: Spontaneous
  Country: CN (occurrence: CN)
  Receive Date: 20191022
  Receipt Date: 20191022
  Transmission Date: 20200122
  Serious: Yes (Hospitalization)
  Sender: FDA-Public Use
  Company Number: CN-BAXTER-2019BAX020902

PATIENT
  Age: 48 Year
  Sex: Female
  Weight: 80 kg

DRUGS (5)
  1. ENDOXAN [Suspect]
     Active Substance: CYCLOPHOSPHAMIDE
     Indication: BREAST CANCER
     Dosage: DAY1, STAT DOSE (ST), ENDOXAN + 0.9% SODIUM CHLORIDE OF 100ML, ONCE IN 14 DAYS
     Route: 041
     Dates: start: 20190921, end: 20190921
  2. PIRARUBICIN HYDROCHLORIDE [Suspect]
     Active Substance: PIRARUBICIN HYDROCHLORIDE
     Indication: BREAST CANCER
     Dosage: DAY1 AND 2, PIRARUBICIN OF 50 MG + 5% GLUCOSE, ONCE IN 14DAYS
     Route: 041
     Dates: start: 20190921, end: 20190922
  3. 0.9% SODIUM CHLORIDE INJECTION [Suspect]
     Active Substance: SODIUM CHLORIDE
     Indication: MEDICATION DILUTION
     Dosage: DAY1, ENDOXAN + 0.9% SODIUM CHLORIDE, ONCE IN 14 DAYS.
     Route: 041
     Dates: start: 20190921, end: 20190921
  4. 5% GLUCOSE  INJECTION [Suspect]
     Active Substance: DEXTROSE
     Indication: MEDICATION DILUTION
     Dosage: DAY1 AND 2, PIRARUBICIN OF 50 MG + 5% GLUCOSE, ONCE IN 14DAYS
     Route: 041
     Dates: start: 20190921, end: 20190922
  5. RECOMBINANT HUMAN GRANULOCYTE STIMULATING FACTOR [Concomitant]
     Indication: PROPHYLAXIS
     Route: 058
     Dates: start: 201909, end: 201909

REACTIONS (1)
  - Bone marrow failure [Recovered/Resolved]

NARRATIVE: CASE EVENT DATE: 20191003
